FAERS Safety Report 11717010 (Version 3)
Quarter: 2015Q4

REPORT INFORMATION
  Report Type: Spontaneous
  Country: US (occurrence: US)
  Receive Date: 20151104
  Receipt Date: 20151120
  Transmission Date: 20160304
  Serious: No
  Sender: FDA-Public Use
  Company Number: US-ELI_LILLY_AND_COMPANY-US201104000117

PATIENT
  Sex: Female

DRUGS (2)
  1. FORTEO [Suspect]
     Active Substance: TERIPARATIDE
     Indication: OSTEOPOROSIS
     Dosage: 20 UG, QD
     Dates: start: 2011
  2. FORTEO [Suspect]
     Active Substance: TERIPARATIDE
     Dosage: 20 UG, QD

REACTIONS (7)
  - Faeces hard [Unknown]
  - Incorrect product storage [Unknown]
  - Middle insomnia [Unknown]
  - Pain in jaw [Unknown]
  - Anxiety [Unknown]
  - Nervousness [Unknown]
  - Headache [Unknown]

NARRATIVE: CASE EVENT DATE: 2011
